FAERS Safety Report 6273781-2 (Version None)
Quarter: 2009Q3

REPORT INFORMATION
  Report Type: 
  Country: None (occurrence: None)
  Receive Date: 20090720
  Receipt Date: 20090710
  Transmission Date: 20100115
  Serious: Yes (Other)
  Sender: FDA-Public Use
  Company Number: B0569730A

PATIENT
  Sex: Female

DRUGS (6)
  1. RELENZA [Suspect]
     Indication: INFLUENZA
     Route: 055
     Dates: start: 20090312, end: 20090315
  2. TELGIN G [Concomitant]
     Indication: RHINORRHOEA
     Dosage: .15G PER DAY
     Route: 048
     Dates: start: 20090312, end: 20090315
  3. SAWATENE [Concomitant]
     Indication: PRODUCTIVE COUGH
     Dosage: 2.1ML PER DAY
     Route: 048
     Dates: start: 20090312, end: 20090315
  4. ACETAMINOPHEN [Concomitant]
     Route: 065
  5. SEISHOKU [Concomitant]
     Indication: INFLUENZA
     Dosage: 4ML PER DAY
     Route: 055
     Dates: start: 20090312, end: 20090313
  6. SEISHOKU [Concomitant]
     Dosage: 2ML PER DAY
     Route: 055
     Dates: start: 20090314, end: 20090315

REACTIONS (2)
  - ERYTHEMA MULTIFORME [None]
  - PYREXIA [None]
